FAERS Safety Report 8383969-2 (Version None)
Quarter: 2012Q2

REPORT INFORMATION
  Report Type: 
  Country: None (occurrence: None)
  Receive Date: 20120524
  Receipt Date: 20120518
  Transmission Date: 20120825
  Serious: Yes (Death)
  Sender: FDA-Public Use
  Company Number: CA-ROCHE-1071224

PATIENT
  Sex: Male
  Weight: 89.892 kg

DRUGS (12)
  1. OXYCODONE HCL AND ACETAMINOPHEN [Concomitant]
  2. BUTRANS [Concomitant]
  3. NEXIUM [Concomitant]
  4. TYLENOL [Concomitant]
  5. ACTEMRA [Suspect]
     Indication: RHEUMATOID ARTHRITIS
     Route: 042
     Dates: start: 20120329, end: 20120423
  6. METHOTREXATE [Concomitant]
  7. PREDNISONE [Concomitant]
  8. ISOSORBIDE MONONITRATE [Concomitant]
  9. LIPITOR [Concomitant]
  10. NAPROSYN [Concomitant]
  11. FOLIC ACID [Concomitant]
  12. ACETYLSALICYLIC ACID ENTERIC COATED [Concomitant]

REACTIONS (1)
  - DEATH [None]
